FAERS Safety Report 8258983-8 (Version None)
Quarter: 2012Q2

REPORT INFORMATION
  Report Type: 
  Country: None (occurrence: None)
  Receive Date: 20120404
  Receipt Date: 20120330
  Transmission Date: 20120825
  Serious: Yes (Hospitalization)
  Sender: FDA-Public Use
  Company Number: US-GILEAD-2012-0052747

PATIENT
  Sex: Female

DRUGS (1)
  1. LETAIRIS [Suspect]
     Indication: PRODUCT USED FOR UNKNOWN INDICATION
     Dosage: 5 MG, UNK
     Route: 048
     Dates: start: 20071128, end: 20120226

REACTIONS (4)
  - GASTROINTESTINAL TUBE INSERTION [None]
  - DYSPHAGIA [None]
  - PNEUMONIA STREPTOCOCCAL [None]
  - PYREXIA [None]
